FAERS Safety Report 21978391 (Version 1)
Quarter: 2023Q1

REPORT INFORMATION
  Report Type: Spontaneous
  Country: US (occurrence: US)
  Receive Date: 20230210
  Receipt Date: 20230210
  Transmission Date: 20230418
  Serious: Yes (Life-Threatening, Hospitalization)
  Sender: FDA-Public Use
  Company Number: US-MYLANLABS-2023M1014982

PATIENT
  Age: 63 Year
  Sex: Female

DRUGS (4)
  1. APIXABAN [Suspect]
     Active Substance: APIXABAN
     Indication: Anticoagulant therapy
     Dosage: UNK
     Route: 065
  2. EPINEPHRINE [Suspect]
     Active Substance: EPINEPHRINE
     Indication: Hypotension
     Dosage: UNK, PUSH DOSES
     Route: 065
  3. SODIUM BICARBONATE [Suspect]
     Active Substance: SODIUM BICARBONATE
     Indication: Hypotension
     Dosage: UNK, PUSH DOSES
     Route: 065
  4. CALCIUM [Suspect]
     Active Substance: CALCIUM
     Indication: Hypotension
     Dosage: UNK, PUSH DOSES
     Route: 065

REACTIONS (1)
  - Drug ineffective [Unknown]
